FAERS Safety Report 25303051 (Version 1)
Quarter: 2025Q2

REPORT INFORMATION
  Report Type: Spontaneous
  Country: IT (occurrence: IT)
  Receive Date: 20250512
  Receipt Date: 20250512
  Transmission Date: 20250717
  Serious: Yes (Death, Other)
  Sender: MICRO LABS
  Company Number: IT-862174955-ML2025-02159

PATIENT
  Age: 44 Year
  Sex: Female

DRUGS (2)
  1. FLUOXETINE [Suspect]
     Active Substance: FLUOXETINE HYDROCHLORIDE
     Indication: Product used for unknown indication
     Route: 045
  2. COCAINE [Suspect]
     Active Substance: COCAINE
     Indication: Product used for unknown indication
     Route: 045

REACTIONS (4)
  - Cardiac failure acute [Fatal]
  - Toxicity to various agents [Fatal]
  - Drug abuse [Fatal]
  - Dilated cardiomyopathy [Fatal]
